FAERS Safety Report 13299967 (Version 1)
Quarter: 2017Q1

REPORT INFORMATION
  Report Type: Spontaneous
  Country: AE (occurrence: AE)
  Receive Date: 20170306
  Receipt Date: 20170306
  Transmission Date: 20170428
  Serious: Yes (Life-Threatening, Hospitalization, Other)
  Sender: FDA-Public Use
  Company Number: AE-BAUSCH-BL-2017-005556

PATIENT
  Age: 33 Year
  Sex: Male

DRUGS (1)
  1. RIBAVIRIN. [Suspect]
     Active Substance: RIBAVIRIN
     Indication: CONGO-CRIMEAN HAEMORRHAGIC FEVER
     Dosage: LOADING DOSE
     Route: 042
     Dates: start: 201011

REACTIONS (2)
  - Condition aggravated [Fatal]
  - Drug ineffective [Not Recovered/Not Resolved]
